FAERS Safety Report 7877780-6 (Version None)
Quarter: 2011Q4

REPORT INFORMATION
  Report Type: 
  Country: None (occurrence: None)
  Receive Date: 20111031
  Receipt Date: 20111031
  Transmission Date: 20120403
  Serious: Yes (Life-Threatening, Other)
  Sender: FDA-Public Use
  Company Number: None

PATIENT
  Age: 53 Year
  Sex: Female
  Weight: 98.429 kg

DRUGS (1)
  1. AGGRENOX [Suspect]
     Indication: CEREBROVASCULAR ACCIDENT
     Dosage: 25MG/200MG
     Route: 048
     Dates: start: 20111027, end: 20111027

REACTIONS (11)
  - SINUS TACHYCARDIA [None]
  - HEADACHE [None]
  - BLOOD GLUCOSE ABNORMAL [None]
  - DIARRHOEA [None]
  - MYALGIA [None]
  - ARTHRALGIA [None]
  - VOMITING [None]
  - CHEST DISCOMFORT [None]
  - DYSPNOEA [None]
  - APHAGIA [None]
  - MALAISE [None]
